FAERS Safety Report 23513886 (Version 1)
Quarter: 2024Q1

REPORT INFORMATION
  Report Type: Spontaneous
  Country: US (occurrence: US)
  Receive Date: 20240212
  Receipt Date: 20240212
  Transmission Date: 20240409
  Serious: Yes (Other)
  Sender: FDA-Public Use
  Company Number: US-ABBVIE-5630842

PATIENT
  Sex: Male
  Weight: 116 kg

DRUGS (5)
  1. LUPRON [Suspect]
     Active Substance: LEUPROLIDE ACETATE
     Indication: Product used for unknown indication
     Route: 065
  2. LUPRON [Suspect]
     Active Substance: LEUPROLIDE ACETATE
     Route: 065
     Dates: start: 202301
  3. XTANDI [Suspect]
     Active Substance: ENZALUTAMIDE
     Indication: Prostate cancer
     Dosage: FORM STRENGTH: 80 MILLIGRAM
     Route: 048
     Dates: start: 20230202
  4. XTANDI [Suspect]
     Active Substance: ENZALUTAMIDE
     Indication: Prostate cancer
     Dosage: FORM STRENGTH: 80 MILLIGRAM
     Route: 048
  5. ELIGARD [Suspect]
     Active Substance: LEUPROLIDE ACETATE
     Indication: Product used for unknown indication
     Route: 048

REACTIONS (3)
  - Hormone therapy [Unknown]
  - Asthenia [Not Recovered/Not Resolved]
  - Fatigue [Unknown]

NARRATIVE: CASE EVENT DATE: 20230101
